FAERS Safety Report 7833669-X (Version None)
Quarter: 2011Q4

REPORT INFORMATION
  Report Type: 
  Country: None (occurrence: None)
  Receive Date: 20111020
  Receipt Date: 20111005
  Transmission Date: 20120403
  Serious: Yes (Hospitalization)
  Sender: FDA-Public Use
  Company Number: 2011MA013054

PATIENT
  Age: 69 Year
  Sex: Female

DRUGS (1)
  1. MIRTAZAPINE [Suspect]
     Indication: DEPRESSION
     Dosage: 45 MG;QD

REACTIONS (5)
  - ANTIPHOSPHOLIPID ANTIBODIES POSITIVE [None]
  - PULMONARY EMBOLISM [None]
  - DEPRESSION [None]
  - CONDITION AGGRAVATED [None]
  - EMBOLISM VENOUS [None]
